FAERS Safety Report 6604559-5 (Version None)
Quarter: 2010Q1

REPORT INFORMATION
  Report Type: 
  Country: None (occurrence: None)
  Receive Date: 20100226
  Receipt Date: 20091124
  Transmission Date: 20100710
  Serious: No
  Sender: FDA-Public Use
  Company Number: A0826657A

PATIENT
  Age: 33 Year
  Sex: Female

DRUGS (4)
  1. LAMICTAL CD [Suspect]
     Indication: EPILEPSY
     Dosage: 100MG PER DAY
     Route: 048
     Dates: start: 20020101
  2. DEPAKOTE [Concomitant]
  3. MELOXICAM [Concomitant]
  4. ATENOLOL [Concomitant]

REACTIONS (4)
  - ANXIETY [None]
  - APHTHOUS STOMATITIS [None]
  - DEPRESSION [None]
  - DIZZINESS [None]
